FAERS Safety Report 23456450 (Version 2)
Quarter: 2025Q1

REPORT INFORMATION
  Report Type: Spontaneous
  Country: NL (occurrence: NL)
  Receive Date: 20240130
  Receipt Date: 20250130
  Transmission Date: 20250409
  Serious: Yes (Other)
  Sender: ALMUS
  Company Number: NL-ALMIRALL-NL-2024-0117

PATIENT
  Sex: Female

DRUGS (1)
  1. KLISYRI [Suspect]
     Active Substance: TIRBANIBULIN
     Indication: Actinic keratosis
     Route: 061
     Dates: start: 20231225, end: 20240101

REACTIONS (2)
  - Pharyngeal swelling [Recovered/Resolved]
  - Swelling face [Recovered/Resolved]
